FAERS Safety Report 17611365 (Version 1)
Quarter: 2020Q2

REPORT INFORMATION
  Report Type: Spontaneous
  Country: NZ (occurrence: NZ)
  Receive Date: 20200401
  Receipt Date: 20200401
  Transmission Date: 20200713
  Serious: Yes (Other)
  Sender: FDA-Public Use
  Company Number: NZ-MYLANLABS-2020M1033309

PATIENT
  Sex: Female

DRUGS (1)
  1. LOGEM [Suspect]
     Active Substance: LAMOTRIGINE
     Indication: MOOD SWINGS
     Dosage: 25 MILLIGRAM, QD
     Dates: start: 20200320, end: 20200322

REACTIONS (6)
  - Hyperhidrosis [Recovering/Resolving]
  - Oral mucosal exfoliation [Recovering/Resolving]
  - Incontinence [Recovering/Resolving]
  - Dry mouth [Recovering/Resolving]
  - Aptyalism [Recovering/Resolving]
  - Product taste abnormal [Recovering/Resolving]

NARRATIVE: CASE EVENT DATE: 20200322
